FAERS Safety Report 14915022 (Version 1)
Quarter: 2018Q2

REPORT INFORMATION
  Report Type: Spontaneous
  Country: US (occurrence: US)
  Receive Date: 20180501
  Receipt Date: 20180501
  Transmission Date: 20180711
  Serious: Yes (Hospitalization)
  Sender: FDA-Public Use
  Company Number: None

PATIENT
  Age: 82 Year
  Sex: Male

DRUGS (1)
  1. IBUPROFEN. [Suspect]
     Active Substance: IBUPROFEN
     Dates: start: 20180303, end: 20180303

REACTIONS (6)
  - Melaena [None]
  - Heyde^s syndrome [None]
  - Upper gastrointestinal haemorrhage [None]
  - Gastric haemorrhage [None]
  - Gastrointestinal carcinoma [None]
  - Haemoglobin decreased [None]

NARRATIVE: CASE EVENT DATE: 20180303
